FAERS Safety Report 19793675 (Version 6)
Quarter: 2022Q1

REPORT INFORMATION
  Report Type: Spontaneous
  Country: PT (occurrence: PT)
  Receive Date: 20210907
  Receipt Date: 20220119
  Transmission Date: 20220424
  Serious: Yes (Life-Threatening, Hospitalization, Other)
  Sender: FDA-Public Use
  Company Number: PT-CELLTRION INC.-2021PT012015

PATIENT

DRUGS (10)
  1. RITUXIMAB [Suspect]
     Active Substance: RITUXIMAB
     Indication: Systemic lupus erythematosus
     Dosage: EVERY 6 MONTHS; IN COMBINATION WITH HYDROXYCHLOROQUINE AND LEFLUNOMIDE
  2. RITUXIMAB [Suspect]
     Active Substance: RITUXIMAB
     Dosage: UNK, EVERY 6 MONTHS
  3. RITUXIMAB [Suspect]
     Active Substance: RITUXIMAB
     Dosage: UNK
     Route: 065
  4. DEXAMETHASONE [Suspect]
     Active Substance: DEXAMETHASONE
     Indication: COVID-19 pneumonia
     Dosage: UNK
  5. HYDROXYCHLOROQUINE [Suspect]
     Active Substance: HYDROXYCHLOROQUINE
     Indication: Systemic lupus erythematosus
     Dosage: IN COMBINATION WITH LEFLUNOMIDE DAILY AND RITUXIMAB EVERY 6 MONTHS
  6. HYDROXYCHLOROQUINE [Suspect]
     Active Substance: HYDROXYCHLOROQUINE
     Dosage: UNK, DAILY
     Route: 065
  7. LEFLUNOMIDE [Suspect]
     Active Substance: LEFLUNOMIDE
     Indication: Systemic lupus erythematosus
     Dosage: DAILY IN COMBINATION WITH HYDROXYCHLOROQUINE AND RITUXIMAB
  8. LEFLUNOMIDE [Suspect]
     Active Substance: LEFLUNOMIDE
     Dosage: UNK UNK, DAILY
     Route: 065
  9. LEFLUNOMIDE [Concomitant]
     Active Substance: LEFLUNOMIDE
     Indication: Systemic lupus erythematosus
  10. HYDROXYCHLOROQUINE [Concomitant]
     Active Substance: HYDROXYCHLOROQUINE
     Indication: Systemic lupus erythematosus

REACTIONS (15)
  - Organising pneumonia [Recovered/Resolved]
  - Bronchoalveolar lavage abnormal [Recovered/Resolved]
  - COVID-19 pneumonia [Recovered/Resolved]
  - Acute respiratory failure [Recovered/Resolved]
  - Humoral immune defect [Recovered/Resolved]
  - B-lymphocyte count decreased [Recovered/Resolved]
  - Pseudomonas infection [Recovered/Resolved]
  - Herpes simplex [Recovered/Resolved]
  - Mechanical ventilation [Recovered/Resolved]
  - Oxygen therapy [Recovered/Resolved]
  - Pyrexia [Unknown]
  - Nosocomial infection [Recovered/Resolved]
  - Bacterial test positive [Recovered/Resolved]
  - Drug ineffective [Unknown]
  - Off label use [Unknown]
